FAERS Safety Report 16669217 (Version 1)
Quarter: 2020Q3

REPORT INFORMATION
  Report Type: Report from Study
  Country: GB (occurrence: GB)
  Receive Date: 20190805
  Receipt Date: 20190805
  Transmission Date: 20201104
  Serious: Yes (Hospitalization)
  Sender: FDA-Public Use
  Company Number: GB-JNJFOC-20190708364

PATIENT
  Age: 70 Year
  Sex: Male

DRUGS (2)
  1. IBRUTINIB [Suspect]
     Active Substance: IBRUTINIB
     Indication: LYMPHOMA
     Route: 048
     Dates: start: 20190515
  2. RITUXIMAB. [Suspect]
     Active Substance: RITUXIMAB
     Indication: LYMPHOMA
     Route: 042
     Dates: start: 20190515

REACTIONS (8)
  - Nausea [Recovered/Resolved]
  - Neutropenic sepsis [Recovered/Resolved]
  - Neutropenia [Recovered/Resolved]
  - Body temperature increased [Recovered/Resolved]
  - Dyspnoea [Recovered/Resolved]
  - Fatigue [Recovered/Resolved]
  - Back pain [Recovered/Resolved]
  - Dysarthria [Recovered/Resolved]

NARRATIVE: CASE EVENT DATE: 20190530
